FAERS Safety Report 9782080 (Version 2)
Quarter: 2013Q4

REPORT INFORMATION
  Report Type: Spontaneous
  Country: US (occurrence: US)
  Receive Date: 20131226
  Receipt Date: 20131226
  Transmission Date: 20140711
  Serious: Yes (Other)
  Sender: FDA-Public Use
  Company Number: US-ROCHE-1166189

PATIENT
  Sex: Female
  Weight: 77.18 kg

DRUGS (9)
  1. AVASTIN [Suspect]
     Indication: PRODUCT USED FOR UNKNOWN INDICATION
     Route: 050
  2. AVASTIN [Suspect]
     Indication: OFF LABEL USE
  3. LUCENTIS [Suspect]
     Indication: DIABETIC RETINAL OEDEMA
     Dosage: 0.3 MG/0.05 ML
     Route: 065
     Dates: start: 20121107, end: 20130111
  4. LUCENTIS [Suspect]
     Indication: DIABETIC RETINOPATHY
  5. OMEPRAZOLE [Concomitant]
     Indication: DYSPEPSIA
     Route: 048
  6. METFORMIN [Concomitant]
     Indication: DIABETES MELLITUS
     Route: 048
  7. GLIPIZIDE [Concomitant]
     Route: 048
  8. LEVOXYL [Concomitant]
     Route: 048
  9. DIOVAN [Concomitant]

REACTIONS (4)
  - Diabetic retinal oedema [Unknown]
  - Dyspnoea [Recovering/Resolving]
  - Respiratory disorder [Recovering/Resolving]
  - Malaise [Recovering/Resolving]
